FAERS Safety Report 19921311 (Version 2)
Quarter: 2021Q4

REPORT INFORMATION
  Report Type: Report from Study
  Country: ES (occurrence: ES)
  Receive Date: 20211005
  Receipt Date: 20211015
  Transmission Date: 20220304
  Serious: Yes (Hospitalization)
  Sender: FDA-Public Use
  Company Number: ES-AMGEN-ESPNI2021085560

PATIENT
  Age: 41 Year
  Sex: Female
  Weight: 70 kg

DRUGS (10)
  1. CINACALCET HYDROCHLORIDE [Suspect]
     Active Substance: CINACALCET HYDROCHLORIDE
     Indication: Product used for unknown indication
     Dosage: UNK (DOSE INCREASED)
     Route: 048
  2. CINACALCET HYDROCHLORIDE [Suspect]
     Active Substance: CINACALCET HYDROCHLORIDE
     Indication: Hyperparathyroidism secondary
     Dosage: 30 MILLIGRAM, QD
     Route: 048
     Dates: start: 20201101
  3. FENTANYL [Suspect]
     Active Substance: FENTANYL
     Indication: Product used for unknown indication
     Dosage: 12 MILLIGRAM, CUTANEOUS
     Route: 065
     Dates: start: 20201127
  4. PAMIDRONATE DISODIUM [Suspect]
     Active Substance: PAMIDRONATE DISODIUM
     Indication: Product used for unknown indication
     Dosage: 60 MILLIGRAM
     Route: 042
     Dates: start: 20210310
  5. SODIUM THIOSULFATE [Suspect]
     Active Substance: SODIUM THIOSULFATE
     Indication: Product used for unknown indication
     Dosage: UNK
  6. SODIUM THIOSULFATE [Suspect]
     Active Substance: SODIUM THIOSULFATE
     Dosage: 10 GRAM
     Route: 042
     Dates: start: 20210102
  7. SINTROM [Concomitant]
     Active Substance: ACENOCOUMAROL
     Dosage: UNK
  8. TOUJEO [Concomitant]
     Active Substance: INSULIN GLARGINE
     Dosage: 15 INTERNATIONAL UNIT, QD
     Route: 058
     Dates: start: 20201027
  9. NEPRO                              /07459601/ [Concomitant]
     Dosage: UNK
  10. IRON [Concomitant]
     Active Substance: IRON
     Dosage: UNK
     Route: 042

REACTIONS (3)
  - Abdominal discomfort [Not Recovered/Not Resolved]
  - Nausea [Not Recovered/Not Resolved]
  - Vomiting [Not Recovered/Not Resolved]

NARRATIVE: CASE EVENT DATE: 20201107
